FAERS Safety Report 9667904 (Version 1)
Quarter: 2013Q4

REPORT INFORMATION
  Report Type: Report from Study
  Country: US (occurrence: US)
  Receive Date: 20131104
  Receipt Date: 20131104
  Transmission Date: 20140711
  Serious: Yes (Hospitalization)
  Sender: FDA-Public Use
  Company Number: US-MERCK-1311USA000563

PATIENT
  Sex: 0

DRUGS (2)
  1. VORINOSTAT [Suspect]
     Indication: GLIOBLASTOMA
  2. BEVACIZUMAB [Suspect]
     Indication: GLIOBLASTOMA

REACTIONS (1)
  - Wound infection [Unknown]
